FAERS Safety Report 17622633 (Version 1)
Quarter: 2020Q2

REPORT INFORMATION
  Report Type: Spontaneous
  Country: IT (occurrence: IT)
  Receive Date: 20200403
  Receipt Date: 20200403
  Transmission Date: 20200713
  Serious: Yes (Other)
  Sender: FDA-Public Use
  Company Number: IT-MYLANLABS-2020M1034535

PATIENT
  Age: 78 Year
  Sex: Female

DRUGS (4)
  1. NIVOLUMAB [Concomitant]
     Active Substance: NIVOLUMAB
     Indication: ADENOCARCINOMA GASTRIC
     Dosage: UNK
     Route: 065
     Dates: start: 20170925
  2. ZOLEDRONIC ACID [Suspect]
     Active Substance: ZOLEDRONIC ACID
     Indication: OSTEOLYSIS
     Dosage: UNK
     Route: 042
     Dates: start: 201706
  3. CAPECITABINE. [Suspect]
     Active Substance: CAPECITABINE
     Indication: ADENOCARCINOMA GASTRIC
     Dosage: MAINTENANCE TREATMENT
     Route: 065
     Dates: start: 2015, end: 201512
  4. PACLITAXEL. [Concomitant]
     Active Substance: PACLITAXEL
     Indication: ADENOCARCINOMA GASTRIC
     Dosage: 80 MILLIGRAM/SQ. METER, CYCLE, DAY 1, 8 AND 15 ADMINISTERED IN 28 DAYS CYCLE
     Route: 065
     Dates: start: 2016

REACTIONS (4)
  - Gastrointestinal toxicity [Recovering/Resolving]
  - Renal impairment [Recovered/Resolved]
  - Condition aggravated [Recovering/Resolving]
  - Skin toxicity [Recovering/Resolving]

NARRATIVE: CASE EVENT DATE: 2015
